FAERS Safety Report 7055728-4 (Version None)
Quarter: 2010Q4

REPORT INFORMATION
  Report Type: 
  Country: None (occurrence: None)
  Receive Date: 20101021
  Receipt Date: 20101014
  Transmission Date: 20110411
  Serious: Yes (Death, Life-Threatening)
  Sender: FDA-Public Use
  Company Number: JP-ROCHE-723829

PATIENT
  Sex: Female
  Weight: 55 kg

DRUGS (2)
  1. HERCEPTIN [Suspect]
     Indication: BREAST CANCER
     Route: 041
     Dates: start: 20100817, end: 20100817
  2. NAVELBINE [Concomitant]
     Route: 041
     Dates: start: 20100817

REACTIONS (4)
  - ANAPHYLACTIC SHOCK [None]
  - BREAST CANCER METASTATIC [None]
  - DISEASE PROGRESSION [None]
  - MALIGNANT NEOPLASM PROGRESSION [None]
